FAERS Safety Report 7008017-8 (Version None)
Quarter: 2010Q3

REPORT INFORMATION
  Report Type: 
  Country: None (occurrence: None)
  Receive Date: 20100922
  Receipt Date: 20100914
  Transmission Date: 20110219
  Serious: Yes (Death)
  Sender: FDA-Public Use
  Company Number: FR-BRACCO-000400

PATIENT
  Sex: Male

DRUGS (3)
  1. IOPAMIDOL [Suspect]
     Indication: ARTERIOGRAM CORONARY
     Route: 042
     Dates: start: 20100325, end: 20100325
  2. TENORMIN [Concomitant]
     Dates: end: 20100319
  3. HEPARIN CALCIUM [Suspect]
     Indication: X-RAY
     Route: 042
     Dates: start: 20100325, end: 20100325

REACTIONS (1)
  - EMBOLISM ARTERIAL [None]
